FAERS Safety Report 25644224 (Version 2)
Quarter: 2025Q3

REPORT INFORMATION
  Report Type: Spontaneous
  Country: US (occurrence: US)
  Receive Date: 20250805
  Receipt Date: 20250805
  Transmission Date: 20251020
  Serious: No
  Sender: SANDOZ
  Company Number: US-SANDOZ-SDZ2025US054645

PATIENT
  Sex: Female
  Weight: 145 kg

DRUGS (1)
  1. GLATIRAMER ACETATE [Suspect]
     Active Substance: GLATIRAMER ACETATE
     Indication: Multiple sclerosis
     Dosage: 40 MG, TID
     Route: 065
     Dates: end: 20250730

REACTIONS (3)
  - Weight fluctuation [Unknown]
  - Injection site pruritus [Recovered/Resolved]
  - Product substitution [Unknown]
